FAERS Safety Report 4889061-3 (Version None)
Quarter: 2005Q4

REPORT INFORMATION
  Report Type: 
  Country: None (occurrence: None)
  Receive Date: 20051216
  Receipt Date: 20050919
  Transmission Date: 20060501
  Serious: No
  Sender: FDA-Public Use
  Company Number: USA0509108488

PATIENT
  Sex: Male

DRUGS (7)
  1. CIALIS [Suspect]
     Indication: ERECTILE DYSFUNCTION
     Dosage: 20 MG/1 AS NEEDED
  2. NIACIN [Concomitant]
  3. SAW PALMETTO STANDARDIZED EXTRACT (SERENOA REPENS) [Concomitant]
  4. CHONDROITIN W/GLUCOSAMINE [Concomitant]
  5. BEANO (ALPHA-D-GALACTOSIDASE) [Concomitant]
  6. ASPIRIN [Concomitant]
  7. MULTI-VITAMIN [Concomitant]

REACTIONS (1)
  - DRUG INEFFECTIVE [None]
